FAERS Safety Report 18086867 (Version 4)
Quarter: 2020Q3

REPORT INFORMATION
  Report Type: Spontaneous
  Country: US (occurrence: US)
  Receive Date: 20200729
  Receipt Date: 20200911
  Transmission Date: 20201103
  Serious: No
  Sender: FDA-Public Use
  Company Number: US-PFIZER INC-2020287266

PATIENT
  Age: 49 Year
  Sex: Female
  Weight: 72.57 kg

DRUGS (2)
  1. DUAVEE [Suspect]
     Active Substance: BAZEDOXIFENE ACETATE\ESTROGENS, CONJUGATED
     Indication: MENORRHAGIA
     Dosage: 1 DF (0.45?20MG), 1X/DAY
     Route: 048
  2. DUAVEE [Suspect]
     Active Substance: BAZEDOXIFENE ACETATE\ESTROGENS, CONJUGATED
     Dosage: 1 DF (0.45?20MG), 1X/DAY
     Route: 048
     Dates: start: 201805, end: 20200727

REACTIONS (16)
  - Product use in unapproved indication [Unknown]
  - Muscle tightness [Unknown]
  - Weight increased [Unknown]
  - Impaired work ability [Unknown]
  - Loss of personal independence in daily activities [Unknown]
  - Off label use [Unknown]
  - Pain [Unknown]
  - Arthralgia [Unknown]
  - Intervertebral disc protrusion [Unknown]
  - Recalled product administered [Unknown]
  - Muscle spasms [Not Recovered/Not Resolved]
  - Arthropathy [Unknown]
  - Neck pain [Unknown]
  - Spinal disorder [Unknown]
  - Myalgia [Unknown]
  - Spinal stenosis [Unknown]

NARRATIVE: CASE EVENT DATE: 2017
